FAERS Safety Report 9115905 (Version 1)
Quarter: 2013Q1

REPORT INFORMATION
  Report Type: Spontaneous
  Country: BR (occurrence: BR)
  Receive Date: 20130225
  Receipt Date: 20130225
  Transmission Date: 20140127
  Serious: Yes (Hospitalization)
  Sender: FDA-Public Use
  Company Number: BR-ASTRAZENECA-2013SE11121

PATIENT
  Age: 804 Month
  Sex: Female
  Weight: 61 kg

DRUGS (9)
  1. NEXIUM [Suspect]
     Indication: GASTRITIS
     Route: 048
     Dates: start: 20120927, end: 201210
  2. NEXIUM [Suspect]
     Indication: THROAT IRRITATION
     Route: 048
     Dates: start: 20120927, end: 201210
  3. NEXIUM [Suspect]
     Indication: GASTRITIS
     Route: 048
     Dates: start: 201210, end: 201211
  4. NEXIUM [Suspect]
     Indication: THROAT IRRITATION
     Route: 048
     Dates: start: 201210, end: 201211
  5. NEXIUM [Suspect]
     Indication: GASTRITIS
     Route: 048
     Dates: start: 201211
  6. NEXIUM [Suspect]
     Indication: THROAT IRRITATION
     Route: 048
     Dates: start: 201211
  7. TRYPTANOL [Concomitant]
     Route: 048
  8. SIMVASTATIN [Concomitant]
     Route: 048
  9. EXTRADOPT [Concomitant]
     Indication: CERVIX CARCINOMA
     Route: 061

REACTIONS (6)
  - Joint range of motion decreased [Recovered/Resolved]
  - Dyspnoea [Recovered/Resolved]
  - Dysphonia [Recovered/Resolved]
  - Throat irritation [Recovered/Resolved]
  - Abdominal pain upper [Recovered/Resolved]
  - Off label use [Not Recovered/Not Resolved]
